FAERS Safety Report 8018639-3 (Version None)
Quarter: 2012Q1

REPORT INFORMATION
  Report Type: 
  Country: None (occurrence: None)
  Receive Date: 20120103
  Receipt Date: 20111229
  Transmission Date: 20120608
  Serious: Yes (Life-Threatening, Other)
  Sender: FDA-Public Use
  Company Number: FR-PFIZER INC-2011308206

PATIENT
  Age: 61 Year
  Sex: Male

DRUGS (13)
  1. ZOLPIDEM [Suspect]
     Indication: INSOMNIA
     Dosage: UNK
     Route: 048
     Dates: start: 20110315, end: 20110317
  2. RAMIPRIL [Concomitant]
     Dosage: UNK
  3. CARVEDILOL [Concomitant]
     Dosage: UNK
  4. LANTUS [Concomitant]
     Dosage: UNK
  5. XANAX [Suspect]
     Dosage: UNK
     Dates: start: 20110315, end: 20110320
  6. LASIX [Concomitant]
     Dosage: UNK
  7. DIGOXIN [Concomitant]
     Dosage: UNK
  8. ALDACTONE [Concomitant]
     Dosage: UNK
  9. SINTROM [Concomitant]
     Dosage: UNK
  10. FENOFIBRATE [Concomitant]
     Dosage: UNK
  11. CORDARONE [Concomitant]
     Indication: ATRIAL FIBRILLATION
     Dosage: 9 TABLETS/DAY 1, 4 TABLETS/DAY 2 THEN AN UNSPECIFIED DOSE ON DAY 3
     Route: 048
     Dates: start: 20110315, end: 20110317
  12. NOVORAPID [Concomitant]
     Dosage: UNK
  13. OMACOR [Concomitant]
     Dosage: UNK

REACTIONS (2)
  - ANAPHYLACTOID REACTION [None]
  - URTICARIA [None]
